FAERS Safety Report 16723680 (Version 2)
Quarter: 2019Q3

REPORT INFORMATION
  Report Type: Spontaneous
  Country: BR (occurrence: BR)
  Receive Date: 20190821
  Receipt Date: 20190904
  Transmission Date: 20191005
  Serious: Yes (Hospitalization)
  Sender: FDA-Public Use
  Company Number: BR-B.I. PHARMACEUTICALS,INC./RIDGEFIELD-2019-MI-000846

PATIENT
  Age: 63 Year
  Sex: Female
  Weight: 55 kg

DRUGS (7)
  1. ESOMEPRAZOL [Concomitant]
     Active Substance: ESOMEPRAZOLE
     Indication: GASTRIC DISORDER
     Dosage: ESOMEPRAZOL 40MG 1 TABLET ONCE DAILY
     Route: 048
     Dates: start: 2019
  2. GLICLAZIDA [Concomitant]
     Active Substance: GLICLAZIDE
     Indication: DIABETES MELLITUS
     Dosage: GLICAZIDA 60MG 1 TABLET ONCE DAILY
     Route: 048
  3. ATORVASTATINA [Concomitant]
     Active Substance: ATORVASTATIN
     Indication: BLOOD CHOLESTEROL INCREASED
     Dosage: ATORVASTATINA 20MG 1 TABLET ONCE DAILY
     Route: 048
  4. MICARDIS [Suspect]
     Active Substance: TELMISARTAN
     Indication: HYPERTENSION
     Dosage: MICARDIS ANLO 80/5MG 1 TABLET ONCE DAILY
     Route: 048
     Dates: start: 201905
  5. GLIFAGE [Concomitant]
     Active Substance: METFORMIN HYDROCHLORIDE
     Indication: DIABETES MELLITUS
     Dosage: GLIFAGE 500MG 2 TABLETS 3 TIMES PER DAY
     Route: 048
  6. MICARDIS [Suspect]
     Active Substance: TELMISARTAN
     Dosage: MICARDIS ANLO 80/5MG
     Route: 048
  7. SELOZOK [Concomitant]
     Active Substance: METOPROLOL SUCCINATE
     Indication: CARDIAC DISORDER
     Dosage: SELOZOK 50MG 2 TABLETS ONCE DAILY
     Route: 048
     Dates: start: 2019

REACTIONS (9)
  - Bronchitis [Not Recovered/Not Resolved]
  - Swollen tongue [Recovered/Resolved]
  - Blood pressure decreased [Not Recovered/Not Resolved]
  - Renal disorder [Not Recovered/Not Resolved]
  - Pharyngeal swelling [Recovered/Resolved]
  - Swelling face [Recovered/Resolved]
  - Arrhythmia [Not Recovered/Not Resolved]
  - Swelling [Recovered/Resolved]
  - Influenza [Recovered/Resolved]

NARRATIVE: CASE EVENT DATE: 201905
